FAERS Safety Report 6190650-7 (Version None)
Quarter: 2009Q2

REPORT INFORMATION
  Report Type: 
  Country: None (occurrence: None)
  Receive Date: 20090514
  Receipt Date: 20090512
  Transmission Date: 20091009
  Serious: Yes (Death, Hospitalization)
  Sender: FDA-Public Use
  Company Number: JP-ABBOTT-09P-087-0568014-00

PATIENT
  Sex: Male

DRUGS (15)
  1. HUMIRA [Suspect]
     Indication: RHEUMATOID ARTHRITIS
     Route: 058
     Dates: start: 20080929
  2. PREDNISOLONE [Suspect]
     Indication: RHEUMATOID ARTHRITIS
     Route: 048
     Dates: start: 20080117
  3. PREDNISOLONE [Suspect]
     Dosage: DAILY
     Route: 048
     Dates: start: 20080929, end: 20081009
  4. PREDNISOLONE [Suspect]
     Dosage: DAILY
     Route: 048
     Dates: start: 20081010, end: 20081023
  5. PREDNISOLONE [Suspect]
     Route: 048
     Dates: start: 20081024
  6. METHOTREXATE [Concomitant]
     Indication: RHEUMATOID ARTHRITIS
     Route: 048
     Dates: start: 20081218
  7. MOSAPRIDE CITRATE HYDRATE [Concomitant]
     Indication: GASTRITIS
     Route: 048
     Dates: start: 20080501
  8. ISONIAZID [Concomitant]
     Indication: ANTIBIOTIC PROPHYLAXIS
     Route: 048
     Dates: start: 20080825
  9. CELECOXIB [Concomitant]
     Indication: FRACTURE
     Dosage: DAILY DOSE: 200 MILLIGRAMS
     Dates: start: 20090121, end: 20090131
  10. MISOPROSTOL [Concomitant]
     Indication: GASTRITIS
     Dosage: DAILY DOSE: 200 MILLIGRAMS
     Dates: start: 20090121, end: 20090131
  11. ZOLPIDEM TARTRATE [Concomitant]
     Indication: INSOMNIA
     Dosage: DAILY DOSE: 5 MILLIGRAMS
     Dates: start: 20090124, end: 20090201
  12. L-CARBOCISTEINE [Concomitant]
     Indication: SINUSITIS
     Dosage: DAILY DOSE: 750 MILLIGRAMS
     Dates: start: 20090129
  13. ALFACALCIDOL [Concomitant]
     Indication: OSTEOPOROSIS
     Dosage: DAILY DOSE: 0.5 MICROGRAMS
     Dates: start: 20090129
  14. MONTELUKAST SODIUM [Concomitant]
     Indication: RHINITIS
     Dosage: DAILY DOSE: 10 MILLIGRAMS
     Dates: start: 20090216
  15. POLYGAM S/D [Concomitant]
     Indication: DRUG USE FOR UNKNOWN INDICATION
     Dates: start: 20090414, end: 20090417

REACTIONS (3)
  - PNEUMONIA [None]
  - SEPSIS [None]
  - SUBCUTANEOUS EMPHYSEMA [None]
